FAERS Safety Report 6761760-8 (Version None)
Quarter: 2010Q2

REPORT INFORMATION
  Report Type: 
  Country: None (occurrence: None)
  Receive Date: 20100419
  Receipt Date: 20100408
  Transmission Date: 20101027
  Serious: Yes (Death, Life-Threatening, Hospitalization, Other)
  Sender: FDA-Public Use
  Company Number: AECAN201000109

PATIENT
  Age: 68 Year
  Sex: Female

DRUGS (2)
  1. ALBUMINAR-25 [Suspect]
     Indication: CARDIAC FAILURE
     Dosage: 12.5 GM;TOTAL;IV; 25 GM;QD;IV
     Route: 042
     Dates: start: 20100318, end: 20100318
  2. ALBUMINAR-25 [Suspect]
     Indication: CARDIAC FAILURE
     Dosage: 12.5 GM;TOTAL;IV; 25 GM;QD;IV
     Route: 042
     Dates: start: 20100319, end: 20100319

REACTIONS (6)
  - CYANOSIS [None]
  - FOAMING AT MOUTH [None]
  - INFUSION RELATED REACTION [None]
  - LOSS OF CONSCIOUSNESS [None]
  - PALLOR [None]
  - PULMONARY EMBOLISM [None]
